FAERS Safety Report 20566292 (Version 1)
Quarter: 2022Q1

REPORT INFORMATION
  Report Type: Spontaneous
  Country: US (occurrence: None)
  Receive Date: 20220307
  Receipt Date: 20220307
  Transmission Date: 20220423
  Serious: Yes (Hospitalization)
  Sender: FDA-Public Use
  Company Number: None

PATIENT
  Age: 32 Year
  Sex: Female

DRUGS (17)
  1. SOTROVIMAB [Suspect]
     Active Substance: SOTROVIMAB
     Indication: COVID-19
     Dosage: OTHER FREQUENCY : ONCE;?
     Route: 042
     Dates: start: 20220222, end: 20220222
  2. albuterol HFA (Ventolin HFA) 90 mcg/actuation inhaler PRN [Concomitant]
  3. calcium carbonate (TUMS) 200 mg calcium (500 mg) chewable tablet PRN [Concomitant]
  4. camphor-eucalyptus oil-menthol 4.8-1.2-2.6 % ointment [Concomitant]
  5. diphenhydrAMINE (BENADRYL) PRN [Concomitant]
  6. EpiNEPHRINE (EPIPEN) PRN [Concomitant]
  7. escitalopram (LEXAPRO) 10 mg tablet [Concomitant]
  8. fluticasone propionate (FLONASE) 50 mcg/actuation nasal spray PRN [Concomitant]
  9. Lactobacillus acidophilus (PROBIOTIC) 10 billion cell capsule [Concomitant]
  10. lidocaine 5 % cream [Concomitant]
  11. lidocaine-prilocaine (EMLA) 2.5-2.5 % cream PRN for mediport access [Concomitant]
  12. metoprolol tartrate (LOPRESSOR) 25mg BID [Concomitant]
  13. omeprazole (PriLOSEC) 40 mg capsule BID [Concomitant]
  14. ondansetron ODT (ZOFRAN-ODT) PRN [Concomitant]
  15. prednisoLONE acetate (Pred Forte) 1 % ophthalmic suspension [Concomitant]
  16. Prenatal Plus, calcium carb, 27 mg iron- 1 mg tablet tablet [Concomitant]
  17. 129-iron-folic (Prenatal One Daily) 27 mg iron- 800 mcg tab [Concomitant]

REACTIONS (4)
  - Inflammatory bowel disease [None]
  - Abdominal pain [None]
  - Crohn^s disease [None]
  - Faecal calprotectin increased [None]

NARRATIVE: CASE EVENT DATE: 20220302
